FAERS Safety Report 18446921 (Version 1)
Quarter: 2020Q4

REPORT INFORMATION
  Report Type: Spontaneous
  Country: US (occurrence: US)
  Receive Date: 20201028
  Receipt Date: 20201028
  Transmission Date: 20210114
  Serious: Yes (Other)
  Sender: FDA-Public Use
  Company Number: None

PATIENT
  Age: 66 Year
  Sex: Female

DRUGS (2)
  1. JOHNSONS BABY POWDER (TALC) [Suspect]
     Active Substance: TALC
     Indication: PRODUCT USED FOR UNKNOWN INDICATION
     Route: 061
     Dates: start: 1958, end: 2015
  2. GOLD BOND (MENTHOL, ZINC OXIDE) (POWDER) (MENTHOL, ZINC OXIDE) [Suspect]
     Active Substance: MENTHOL\ZINC OXIDE
     Indication: PRODUCT USED FOR UNKNOWN INDICATION
     Route: 061
     Dates: start: 1958, end: 2015

REACTIONS (3)
  - Injury [None]
  - Abdominal pain [None]
  - Ovarian clear cell carcinoma [None]

NARRATIVE: CASE EVENT DATE: 20150413
